FAERS Safety Report 7894150-5 (Version None)
Quarter: 2011Q4

REPORT INFORMATION
  Report Type: 
  Country: None (occurrence: None)
  Receive Date: 20111104
  Receipt Date: 20111101
  Transmission Date: 20120403
  Serious: No
  Sender: FDA-Public Use
  Company Number: US-PFIZER INC-2011223535

PATIENT
  Sex: Male

DRUGS (4)
  1. LUNESTA [Concomitant]
     Indication: SLEEP DISORDER
     Dosage: UNK
  2. ALAVERT [Suspect]
     Indication: NASOPHARYNGITIS
     Dosage: UNKNOWN DOSE EVERY FOUR HOURS
     Route: 048
     Dates: start: 20110912, end: 20110920
  3. ALAVERT [Suspect]
     Indication: RHINORRHOEA
  4. ALAVERT [Suspect]
     Indication: COUGH

REACTIONS (3)
  - DIZZINESS [None]
  - INSOMNIA [None]
  - HEADACHE [None]
